FAERS Safety Report 5438671-3 (Version None)
Quarter: 2007Q3

REPORT INFORMATION
  Report Type: 
  Country: None (occurrence: None)
  Receive Date: 20070831
  Receipt Date: 20070823
  Transmission Date: 20080115
  Serious: Yes (Other)
  Sender: FDA-Public Use
  Company Number: US-JNJFOC-20070804600

PATIENT
  Age: 83 Year
  Sex: Male

DRUGS (7)
  1. VIADUR [Suspect]
     Dosage: 2ND IMPLANT
     Route: 058
  2. VIADUR [Suspect]
     Indication: PROSTATE CANCER
     Dosage: 1ST IMPLANT
     Route: 058
  3. OSCAL [Concomitant]
     Route: 065
  4. LUPRON [Concomitant]
     Route: 065
  5. FOSAMAX [Concomitant]
     Route: 065
  6. VITAMIN D [Concomitant]
     Route: 065
  7. FLUTAMIDE [Concomitant]
     Route: 065

REACTIONS (1)
  - PROSTATIC SPECIFIC ANTIGEN INCREASED [None]
